FAERS Safety Report 15766751 (Version 2)
Quarter: 2019Q1

REPORT INFORMATION
  Report Type: Report from Study
  Country: CR (occurrence: CR)
  Receive Date: 20181227
  Receipt Date: 20190125
  Transmission Date: 20190417
  Serious: Yes (Other)
  Sender: FDA-Public Use
  Company Number: PHHY2018CR196277

PATIENT
  Sex: Female
  Weight: 61 kg

DRUGS (6)
  1. SANDOSTATIN LAR DEPOT [Suspect]
     Active Substance: OCTREOTIDE ACETATE
     Indication: ACROMEGALY
     Dosage: UNK
     Route: 065
  2. SANDOSTATIN LAR DEPOT [Suspect]
     Active Substance: OCTREOTIDE ACETATE
     Dosage: UNK
     Route: 065
  3. HYDROCORTISONE. [Concomitant]
     Active Substance: HYDROCORTISONE
     Indication: PRODUCT USED FOR UNKNOWN INDICATION
     Dosage: 20 MG,  (10 MG IN THE MORNING AND 10MG IN THE EVENING)
     Route: 065
  4. LEVOTHYROXINE. [Concomitant]
     Active Substance: LEVOTHYROXINE
     Indication: PRODUCT USED FOR UNKNOWN INDICATION
     Dosage: 100 MG, QD (IN THE MORNING)
     Route: 065
  5. PROGYLUTON [Concomitant]
     Active Substance: ESTRADIOL VALERATE\NORGESTREL
     Indication: PRODUCT USED FOR UNKNOWN INDICATION
  6. SANDOSTATIN LAR DEPOT [Suspect]
     Active Substance: OCTREOTIDE ACETATE
     Dosage: 40 MG, QMO (2 INJECTIONS)
     Route: 030

REACTIONS (4)
  - Brain neoplasm [Unknown]
  - Foreign body in gastrointestinal tract [Unknown]
  - Blood growth hormone increased [Unknown]
  - Nasal cavity mass [Unknown]
